FAERS Safety Report 21719961 (Version 1)
Quarter: 2022Q4

REPORT INFORMATION
  Report Type: Spontaneous
  Country: US (occurrence: US)
  Receive Date: 20221213
  Receipt Date: 20221213
  Transmission Date: 20230113
  Serious: Yes (Death, Other)
  Sender: FDA-Public Use
  Company Number: US-BRISTOL-MYERS SQUIBB COMPANY-2022-152170

PATIENT
  Age: 71 Year
  Sex: Male

DRUGS (2)
  1. OPDIVO [Suspect]
     Active Substance: NIVOLUMAB
     Indication: Malignant melanoma
     Dosage: DOSE : OP 54MG  YERVOY 163MG;     FREQ : EVERY 21 DAYS
     Dates: start: 20220718
  2. YERVOY [Suspect]
     Active Substance: IPILIMUMAB
     Indication: Malignant melanoma
     Dosage: DOSE : OP 54MG  YERVOY 163MG;     FREQ : EVERY 21 DAYS
     Dates: start: 20220718

REACTIONS (1)
  - Death [Fatal]

NARRATIVE: CASE EVENT DATE: 20221113
